FAERS Safety Report 5011075-3 (Version None)
Quarter: 2006Q2

REPORT INFORMATION
  Report Type: 
  Country: None (occurrence: None)
  Receive Date: 20060523
  Receipt Date: 20060520
  Transmission Date: 20061013
  Serious: Yes (Hospitalization)
  Sender: FDA-Public Use
  Company Number: 222996

PATIENT
  Age: 48 Year
  Sex: Male

DRUGS (3)
  1. AVASTIN [Suspect]
     Indication: COLORECTAL CANCER
     Dosage: 600 MG, Q3W, INTRAVENOUS
     Route: 042
     Dates: start: 20051214
  2. CAPECITABINE (CAPECITABINE) [Suspect]
     Indication: COLORECTAL CANCER
     Dosage: 2000 MG, BID, ORAL
     Route: 048
     Dates: start: 20051214
  3. OXALIPLATIN (OXALIPLATIN) [Suspect]
     Indication: COLORECTAL CANCER
     Dosage: 250 MG, Q3W, INTRAVENOUS
     Route: 042
     Dates: start: 20051214

REACTIONS (4)
  - BLOOD CREATININE INCREASED [None]
  - COMA [None]
  - EPILEPSY [None]
  - GENERALISED OEDEMA [None]
